FAERS Safety Report 7009877-7 (Version None)
Quarter: 2010Q3

REPORT INFORMATION
  Report Type: 
  Country: None (occurrence: None)
  Receive Date: 20100923
  Receipt Date: 20100913
  Transmission Date: 20110219
  Serious: Yes (Hospitalization)
  Sender: FDA-Public Use
  Company Number: BR-ROCHE-728112

PATIENT
  Sex: Female

DRUGS (3)
  1. MYCOPHENOLATE MOFETIL [Suspect]
     Route: 065
     Dates: start: 20060205
  2. BELATACEPT [Suspect]
     Route: 042
     Dates: start: 20060204
  3. PREDNISONE [Suspect]
     Route: 065
     Dates: start: 20060205

REACTIONS (5)
  - DEEP VEIN THROMBOSIS [None]
  - HYPOGLYCAEMIA [None]
  - MENINGITIS [None]
  - RADICULAR SYNDROME [None]
  - TRANSIENT ISCHAEMIC ATTACK [None]
